FAERS Safety Report 20756761 (Version 1)
Quarter: 2022Q2

REPORT INFORMATION
  Report Type: Report from Study
  Country: CA (occurrence: CA)
  Receive Date: 20220427
  Receipt Date: 20220427
  Transmission Date: 20220721
  Serious: Yes (Other)
  Sender: FDA-Public Use
  Company Number: CA-SA-2020SA033271

PATIENT
  Sex: Female

DRUGS (6)
  1. TERIFLUNOMIDE [Suspect]
     Active Substance: TERIFLUNOMIDE
     Indication: Relapsing-remitting multiple sclerosis
     Dosage: 14 MG, QD
     Route: 048
     Dates: start: 20140115
  2. LYRICA [Concomitant]
     Active Substance: PREGABALIN
     Route: 048
  3. VITAMIN D NOS [Concomitant]
     Active Substance: VITAMIN D NOS
     Indication: Multiple sclerosis
     Dosage: UNK
     Route: 048
  4. HERBALS\PLANTAGO OVATA SEED COAT [Concomitant]
     Active Substance: HERBALS\PLANTAGO OVATA SEED COAT
     Indication: Irritable bowel syndrome
     Dosage: UNK
     Route: 048
  5. FISH OIL [Concomitant]
     Active Substance: FISH OIL
     Indication: Dry eye
  6. PINAVERIUM BROMIDE [Concomitant]
     Active Substance: PINAVERIUM BROMIDE

REACTIONS (5)
  - Acoustic neuroma [Recovered/Resolved]
  - Ear canal injury [Recovered/Resolved]
  - Calcinosis [Unknown]
  - Arthralgia [Unknown]
  - Ear discomfort [Not Recovered/Not Resolved]

NARRATIVE: CASE EVENT DATE: 20190101
